FAERS Safety Report 12368655 (Version 1)
Quarter: 2016Q2

REPORT INFORMATION
  Report Type: Spontaneous
  Country: US (occurrence: US)
  Receive Date: 20160513
  Receipt Date: 20160513
  Transmission Date: 20160815
  Serious: No
  Sender: FDA-Public Use
  Company Number: US-JNJFOC-20160421222

PATIENT
  Sex: Male
  Weight: 75.75 kg

DRUGS (3)
  1. PROPECIA [Concomitant]
     Active Substance: FINASTERIDE
     Indication: HAIR DISORDER
     Route: 065
     Dates: start: 2009
  2. MENS ROGAINE EXTRA STRENGTH [Suspect]
     Active Substance: MINOXIDIL
     Route: 061
  3. MENS ROGAINE EXTRA STRENGTH [Suspect]
     Active Substance: MINOXIDIL
     Indication: ALOPECIA
     Dosage: ONE FULL DROPPER PER USE
     Route: 061
     Dates: start: 2009

REACTIONS (2)
  - Incorrect dose administered [Recovered/Resolved]
  - Pruritus [Recovered/Resolved]
